FAERS Safety Report 5671410-X (Version None)
Quarter: 2008Q1

REPORT INFORMATION
  Report Type: 
  Country: None (occurrence: None)
  Receive Date: 20080318
  Receipt Date: 20080310
  Transmission Date: 20080703
  Serious: Yes (Other)
  Sender: FDA-Public Use
  Company Number: FR-PFIZER INC-2008022269

PATIENT
  Age: 64 Year
  Sex: Male

DRUGS (4)
  1. TAHOR [Suspect]
  2. CARDENSIEL [Concomitant]
  3. IRBESARTAN [Concomitant]
  4. KARDEGIC [Concomitant]

REACTIONS (3)
  - HAEMATOMA [None]
  - OEDEMA [None]
  - PAIN IN EXTREMITY [None]
